FAERS Safety Report 10801697 (Version 1)
Quarter: 2015Q1

REPORT INFORMATION
  Report Type: Spontaneous
  Country: FR (occurrence: FR)
  Receive Date: 20150217
  Receipt Date: 20150217
  Transmission Date: 20150721
  Serious: Yes (Other)
  Sender: FDA-Public Use
  Company Number: FR-BAYER-2015-020307

PATIENT
  Sex: Male

DRUGS (2)
  1. NEXAVAR [Suspect]
     Active Substance: SORAFENIB
     Indication: HEPATIC CANCER METASTATIC
     Dosage: DAILY DOSE 800 MG
     Dates: start: 20141202, end: 20150202
  2. ZOMETA [Concomitant]
     Active Substance: ZOLEDRONIC ACID
     Dosage: UNK
     Dates: start: 20141219

REACTIONS (7)
  - Asthenia [None]
  - Eczema [Recovering/Resolving]
  - Rash [None]
  - Xerosis [None]
  - Psoriasis [None]
  - Alopecia [None]
  - Rash [None]

NARRATIVE: CASE EVENT DATE: 201412
